FAERS Safety Report 4688735-7 (Version None)
Quarter: 2005Q2

REPORT INFORMATION
  Report Type: 
  Country: None (occurrence: None)
  Receive Date: 20050608
  Receipt Date: 20050328
  Transmission Date: 20051028
  Serious: No
  Sender: FDA-Public Use
  Company Number: 2004-BP-11986BP

PATIENT
  Sex: Female

DRUGS (13)
  1. SPIRIVA [Suspect]
     Indication: CHRONIC OBSTRUCTIVE PULMONARY DISEASE
     Dosage: 18 MCG (18 MCG), IH
     Route: 055
  2. SPIRIVA [Suspect]
     Indication: CHRONIC OBSTRUCTIVE PULMONARY DISEASE
     Dosage: 18 MCG (18 MCG), IH
     Route: 055
  3. SPIRIVA [Suspect]
     Indication: CHRONIC OBSTRUCTIVE PULMONARY DISEASE
     Dosage: 18 MCG (18 MCG), IH
     Route: 055
  4. ALBUTEROL [Concomitant]
  5. LEVOXYL [Concomitant]
  6. ALLEGRA [Concomitant]
  7. LIPITOR [Concomitant]
  8. PREVACID [Concomitant]
  9. EVISTA [Concomitant]
  10. XALATAN [Concomitant]
  11. SEREVENT [Concomitant]
  12. NASACORT [Concomitant]
  13. ASTELEN [Concomitant]

REACTIONS (2)
  - AGEUSIA [None]
  - COUGH [None]
